FAERS Safety Report 25543967 (Version 1)
Quarter: 2025Q3

REPORT INFORMATION
  Report Type: Spontaneous
  Country: US (occurrence: US)
  Receive Date: 20250711
  Receipt Date: 20250711
  Transmission Date: 20251021
  Serious: Yes (Death, Hospitalization, Other)
  Sender: DR REDDYS
  Company Number: US-DRL-USA-USA/2025/07/009784

PATIENT
  Age: 73 Year
  Sex: Male
  Weight: 79.7 kg

DRUGS (3)
  1. LENALIDOMIDE [Suspect]
     Active Substance: LENALIDOMIDE
     Indication: Plasma cell myeloma
     Route: 048
     Dates: start: 20240710, end: 20250605
  2. REVLIMID [Suspect]
     Active Substance: LENALIDOMIDE
     Route: 065
  3. BORTEZOMIB [Concomitant]
     Active Substance: BORTEZOMIB
     Route: 065

REACTIONS (6)
  - Death [Fatal]
  - Dizziness [Recovering/Resolving]
  - Hypotension [Recovering/Resolving]
  - Melaena [Recovering/Resolving]
  - Abdominal mass [Recovering/Resolving]
  - Hepatic lesion [Recovering/Resolving]
